FAERS Safety Report 9360101 (Version 2)
Quarter: 2013Q3

REPORT INFORMATION
  Report Type: Spontaneous
  Country: US (occurrence: US)
  Receive Date: 20130621
  Receipt Date: 20130722
  Transmission Date: 20140515
  Serious: No
  Sender: FDA-Public Use
  Company Number: US-PFIZER INC-2013182801

PATIENT
  Age: 62 Year
  Sex: Female
  Weight: 94.33 kg

DRUGS (8)
  1. XELJANZ [Suspect]
     Indication: RHEUMATOID ARTHRITIS
     Dosage: 5 MG, 1X/DAY
     Route: 048
  2. DICLOFENAC [Concomitant]
     Dosage: 25 MG
     Route: 048
  3. FOLIC ACID [Concomitant]
     Dosage: UNK
     Route: 048
  4. VITAMIN C [Concomitant]
     Dosage: 500 MG
     Route: 048
  5. TRAMADOL HYDROCHLORIDE [Concomitant]
     Dosage: 50 MG
     Route: 048
  6. VITAMIN E [Concomitant]
     Dosage: 1000 UNIT
     Route: 048
  7. BLACK COHOSH [Concomitant]
     Dosage: 1000 MG
     Route: 048
  8. SOY [Concomitant]
     Dosage: 50 MG

REACTIONS (2)
  - Nausea [Recovered/Resolved]
  - Abdominal pain [Unknown]
